FAERS Safety Report 8925861 (Version 1)
Quarter: 2012Q4

REPORT INFORMATION
  Report Type: 
  Country: JP (occurrence: JP)
  Receive Date: 20121126
  Receipt Date: 20121126
  Transmission Date: 20130627
  Serious: Yes (Other)
  Sender: FDA-Public Use
  Company Number: JP-B.I. PHARMACEUTICALS,INC./RIDGEFIELD-2012-BI-00726NB

PATIENT

DRUGS (1)
  1. PRADAXA [Suspect]

REACTIONS (2)
  - Head and neck cancer [Unknown]
  - Dysphagia [Unknown]
